FAERS Safety Report 15029743 (Version 1)
Quarter: 2018Q2

REPORT INFORMATION
  Report Type: Spontaneous
  Country: US (occurrence: US)
  Receive Date: 20180529
  Receipt Date: 20180529
  Transmission Date: 20180711
  Serious: No
  Sender: FDA-Public Use
  Company Number: None

PATIENT
  Age: 79 Year
  Sex: Female
  Weight: 58.97 kg

DRUGS (19)
  1. PANATHINE [Concomitant]
  2. VITAMIN D [Concomitant]
     Active Substance: CHOLECALCIFEROL
  3. OCCUDYNE [Concomitant]
  4. PREDNISONE. [Concomitant]
     Active Substance: PREDNISONE
  5. OFLOXACIN OPHTHALMIC [Suspect]
     Active Substance: OFLOXACIN
     Indication: FALL
     Dosage: QUANTITY:4 GTT DROP(S);?
     Route: 047
     Dates: start: 20171225
  6. MULTIPLE VIT [Concomitant]
  7. OFLOXACIN OPHTHALMIC [Suspect]
     Active Substance: OFLOXACIN
     Indication: EYE INJURY
     Dosage: QUANTITY:4 GTT DROP(S);?
     Route: 047
     Dates: start: 20171225
  8. CUCUMIN [Concomitant]
  9. NIACIN. [Concomitant]
     Active Substance: NIACIN
  10. FISH OIL [Concomitant]
     Active Substance: FISH OIL
  11. PROBIOTIC [Concomitant]
     Active Substance: PROBIOTICS NOS
  12. VITAMIN B COMPLEX [Concomitant]
     Active Substance: CYANOCOBALAMIN\DEXPANTHENOL\NIACINAMIDE\PYRIDOXINE HYDROCHLORIDE\RIBOFLAVIN 5^-PHOSPHATE SODIUM\THIAMINE HYDROCHLORIDE\VITAMIN B COMPLEX
  13. ANTIBIOTIC [Concomitant]
     Active Substance: UNSPECIFIED INGREDIENT
  14. M. FOLATE [Concomitant]
  15. SELENIUM [Concomitant]
     Active Substance: SELENIUM
  16. NATURE-THROID [Concomitant]
     Active Substance: THYROID, PORCINE
  17. CQ10 [Concomitant]
     Active Substance: UBIDECARENONE
  18. MK7 [Concomitant]
  19. CALCIUM [Concomitant]
     Active Substance: CALCIUM

REACTIONS (1)
  - Diarrhoea [None]

NARRATIVE: CASE EVENT DATE: 20180401
